FAERS Safety Report 4815075-5 (Version None)
Quarter: 2005Q4

REPORT INFORMATION
  Report Type: 
  Country: None (occurrence: None)
  Receive Date: 20051026
  Receipt Date: 20051011
  Transmission Date: 20060501
  Serious: Yes (Other)
  Sender: FDA-Public Use
  Company Number: GBS051018725

PATIENT
  Age: 9 Year
  Sex: Male

DRUGS (1)
  1. ATOMOXETINE HYDROCHLORIDE [Suspect]
     Indication: ATTENTION DEFICIT/HYPERACTIVITY DISORDER
     Dosage: 36 MG
     Dates: start: 20050801, end: 20051010

REACTIONS (5)
  - ABNORMAL BEHAVIOUR [None]
  - MOOD ALTERED [None]
  - SEDATION [None]
  - SELF INJURIOUS BEHAVIOUR [None]
  - TEARFULNESS [None]
